FAERS Safety Report 25926806 (Version 1)
Quarter: 2025Q4

REPORT INFORMATION
  Report Type: Spontaneous
  Country: EU (occurrence: EU)
  Receive Date: 20251015
  Receipt Date: 20251015
  Transmission Date: 20260117
  Serious: Yes (Death, Hospitalization, Other)
  Sender: PFIZER
  Company Number: EU-ABBVIE-6489731

PATIENT
  Age: 78 Year
  Sex: Male

DRUGS (9)
  1. GLASDEGIB [Suspect]
     Active Substance: GLASDEGIB
     Indication: Acute myeloid leukaemia
     Dosage: 100 MG(LAST ADMIN DATE:2024)
     Dates: start: 20240625
  2. GLASDEGIB [Suspect]
     Active Substance: GLASDEGIB
     Dosage: 50 MG(EXTENSION OF CYCLE LENGTH TO SUCCESSIVELY 42 DAYS, AND DOSE REDUCTION TO 50MG GLASDEGIB)
     Dates: start: 202408, end: 202410
  3. GLASDEGIB [Suspect]
     Active Substance: GLASDEGIB
     Dosage: 25 MG(A TOTAL OF 10 CYCLES)
     Dates: start: 202411, end: 202503
  4. VENETOCLAX [Suspect]
     Active Substance: VENETOCLAX
     Indication: Acute myeloid leukaemia
     Dosage: D1-21 CYCLE
     Route: 048
     Dates: start: 202311
  5. VENETOCLAX [Suspect]
     Active Substance: VENETOCLAX
     Dosage: CYCLE 1
     Route: 048
     Dates: start: 202309
  6. AZACITIDINE [Suspect]
     Active Substance: AZACITIDINE
     Indication: Acute myeloid leukaemia
     Dosage: FIRST ADMIN DATE:2024, DOSE REDUCED
  7. AZACITIDINE [Suspect]
     Active Substance: AZACITIDINE
     Dosage: D1-5
     Dates: start: 202309, end: 2024
  8. DECITABINE [Suspect]
     Active Substance: DECITABINE
     Indication: Acute myeloid leukaemia
     Dosage: UNK
     Dates: start: 20250507
  9. CYTARABINE [Concomitant]
     Active Substance: CYTARABINE
     Indication: Acute myeloid leukaemia
     Dosage: UNK
     Route: 058

REACTIONS (12)
  - Death [Fatal]
  - Neutropenic sepsis [Recovering/Resolving]
  - Pancytopenia [Unknown]
  - Neutropenia [Unknown]
  - Delirium [Unknown]
  - Myelosuppression [Unknown]
  - Pneumonia [Unknown]
  - Acute myeloid leukaemia recurrent [Unknown]
  - Arthralgia [Unknown]
  - Decreased appetite [Unknown]
  - Inflammatory marker increased [Unknown]
  - Infection [Unknown]

NARRATIVE: CASE EVENT DATE: 20231001
